FAERS Safety Report 11003708 (Version 1)
Quarter: 2015Q2

REPORT INFORMATION
  Report Type: Spontaneous
  Country: US (occurrence: None)
  Receive Date: 20150403
  Receipt Date: 20150403
  Transmission Date: 20150821
  Serious: Yes (Other)
  Sender: FDA-Public Use
  Company Number: 2014-06308

PATIENT
  Sex: Female

DRUGS (2)
  1. METOCLOPRAMIDE. [Suspect]
     Active Substance: METOCLOPRAMIDE
     Indication: GASTROOESOPHAGEAL REFLUX DISEASE
     Dosage: AS PRESCRIBED
     Route: 048
     Dates: start: 200704, end: 200905
  2. REGLAN [Suspect]
     Active Substance: METOCLOPRAMIDE HYDROCHLORIDE
     Indication: GASTROOESOPHAGEAL REFLUX DISEASE
     Dosage: AS PRESCRIBED
     Route: 048
     Dates: start: 200704, end: 200905

REACTIONS (2)
  - Dyskinesia [None]
  - Tardive dyskinesia [None]

NARRATIVE: CASE EVENT DATE: 20090602
